FAERS Safety Report 23783608 (Version 1)
Quarter: 2024Q2

REPORT INFORMATION
  Report Type: Spontaneous
  Country: US (occurrence: None)
  Receive Date: 20240424
  Receipt Date: 20240424
  Transmission Date: 20240715
  Serious: No
  Sender: FDA-Public Use
  Company Number: None

PATIENT
  Age: 62 Year
  Sex: Female

DRUGS (1)
  1. RINVOQ [Suspect]
     Active Substance: UPADACITINIB
     Indication: Rheumatoid arthritis
     Dosage: FREQUENCY : DAILY;?
     Route: 048
     Dates: start: 202401

REACTIONS (8)
  - Stomatitis [None]
  - Oral mucosal blistering [None]
  - Mouth swelling [None]
  - Skin ulcer [None]
  - Blister [None]
  - Skin swelling [None]
  - Illness [None]
  - Product dose omission in error [None]
